FAERS Safety Report 8029686-X (Version None)
Quarter: 2012Q1

REPORT INFORMATION
  Report Type: 
  Country: None (occurrence: None)
  Receive Date: 20120109
  Receipt Date: 20120107
  Transmission Date: 20120608
  Serious: Yes (Other)
  Sender: FDA-Public Use
  Company Number: US-PFIZER INC-2012004991

PATIENT
  Sex: Female
  Weight: 68.934 kg

DRUGS (2)
  1. LIPITOR [Suspect]
     Indication: BLOOD CHOLESTEROL INCREASED
     Dosage: UNK, DAILY
  2. LIPITOR [Suspect]
     Dosage: 20 MG, DAILY

REACTIONS (1)
  - BACK DISORDER [None]
